FAERS Safety Report 13056734 (Version 6)
Quarter: 2018Q4

REPORT INFORMATION
  Report Type: Spontaneous
  Country: US (occurrence: US)
  Receive Date: 20161222
  Receipt Date: 20181115
  Transmission Date: 20190204
  Serious: Yes (Hospitalization, Other)
  Sender: FDA-Public Use
  Company Number: US-BIOMARINAP-US-2016-109231

PATIENT
  Age: 43 Year
  Sex: Female

DRUGS (1)
  1. ALDURAZYME [Suspect]
     Active Substance: LARONIDASE
     Indication: MUCOPOLYSACCHARIDOSIS I
     Dosage: 20.3 MG, QW
     Route: 041
     Dates: start: 20150903

REACTIONS (13)
  - Carpal tunnel syndrome [Not Recovered/Not Resolved]
  - Retinal oedema [Unknown]
  - Pain in extremity [Not Recovered/Not Resolved]
  - Alopecia [Unknown]
  - Vaginal haemorrhage [Recovering/Resolving]
  - Haemoglobin decreased [Recovering/Resolving]
  - Surgery [Not Recovered/Not Resolved]
  - Visual impairment [Recovering/Resolving]
  - Vision blurred [Unknown]
  - Chest discomfort [Recovered/Resolved]
  - Heart rate increased [Unknown]
  - Optic nerve injury [Not Recovered/Not Resolved]
  - Papilloedema [Not Recovered/Not Resolved]

NARRATIVE: CASE EVENT DATE: 201804
